FAERS Safety Report 7220427-2 (Version None)
Quarter: 2010Q4

REPORT INFORMATION
  Report Type: 
  Country: None (occurrence: None)
  Receive Date: 20101230
  Receipt Date: 20101210
  Transmission Date: 20110411
  Serious: Yes (Hospitalization)
  Sender: FDA-Public Use
  Company Number: 2010SP064483

PATIENT
  Sex: Male

DRUGS (7)
  1. ONCOTICE [Suspect]
     Indication: BLADDER CANCER
  2. WARFARIN SODIUM [Concomitant]
  3. BRINZOLAMIDE [Concomitant]
  4. SIMVASTATIN [Concomitant]
  5. LOSARTAN POTASSIUM [Concomitant]
  6. ALFUZOSIN [Concomitant]
  7. FINASTENDE [Concomitant]

REACTIONS (2)
  - SEDATION [None]
  - UNRESPONSIVE TO STIMULI [None]
